FAERS Safety Report 6277690-4 (Version None)
Quarter: 2009Q3

REPORT INFORMATION
  Report Type: 
  Country: None (occurrence: None)
  Receive Date: 20090722
  Receipt Date: 20090713
  Transmission Date: 20100115
  Serious: Yes (Hospitalization, Congenital Anomaly)
  Sender: FDA-Public Use
  Company Number: A0683595A

PATIENT
  Sex: Female
  Weight: 3.7 kg

DRUGS (5)
  1. PAXIL [Suspect]
     Indication: DEPRESSION
  2. PAXIL CR [Suspect]
     Indication: DEPRESSION
  3. MACROBID [Concomitant]
  4. ZOFRAN [Concomitant]
  5. PHENERGAN [Concomitant]

REACTIONS (12)
  - APNOEA [None]
  - CARDIAC ARREST [None]
  - CARDIAC FAILURE CONGESTIVE [None]
  - CONGENITAL AORTIC ATRESIA [None]
  - DEXTROCARDIA [None]
  - DRUG EXPOSURE DURING PREGNANCY [None]
  - HEART DISEASE CONGENITAL [None]
  - HYPOPLASTIC LEFT HEART SYNDROME [None]
  - PATENT DUCTUS ARTERIOSUS [None]
  - RESPIRATORY DISTRESS [None]
  - TALIPES [None]
  - VENTRICULAR SEPTAL DEFECT [None]
